FAERS Safety Report 8221838-9 (Version None)
Quarter: 2012Q1

REPORT INFORMATION
  Report Type: 
  Country: None (occurrence: None)
  Receive Date: 20120307
  Receipt Date: 20101102
  Transmission Date: 20120608
  Serious: Yes (Life-Threatening, Other)
  Sender: FDA-Public Use
  Company Number: PHHY2010US62482

PATIENT
  Age: 75 Year
  Sex: Male
  Weight: 101 kg

DRUGS (9)
  1. TOPROL-XL [Concomitant]
  2. LORTAB [Concomitant]
  3. PREVACID [Concomitant]
  4. CRESTOR [Concomitant]
  5. LISINOPRIL [Concomitant]
  6. AFINITOR [Suspect]
     Indication: RENAL CELL CARCINOMA
     Dosage: 10 MG, QD, ORAL
     Route: 048
     Dates: start: 20100807, end: 20100816
  7. GIOXPENTANE [Concomitant]
  8. ASPIRIN [Concomitant]
  9. SYNTHROID [Concomitant]

REACTIONS (3)
  - RASH FOLLICULAR [None]
  - ANGIOEDEMA [None]
  - ENDOTRACHEAL INTUBATION [None]
